FAERS Safety Report 7441667-3 (Version None)
Quarter: 2011Q2

REPORT INFORMATION
  Report Type: 
  Country: None (occurrence: None)
  Receive Date: 20110408
  Receipt Date: 20110330
  Transmission Date: 20111010
  Serious: Yes (Hospitalization)
  Sender: FDA-Public Use
  Company Number: 2011028045

PATIENT
  Age: 44 Year
  Sex: Female
  Weight: 68.0396 kg

DRUGS (17)
  1. FLONASE [Concomitant]
  2. FERROUS (FERROUS SULFATE) [Concomitant]
  3. FEXOFENADINE HCL [Concomitant]
  4. HIZENTRA [Suspect]
     Indication: IMMUNODEFICIENCY COMMON VARIABLE
     Dosage: 7G, 1XWEEK, INFUSED 35ML OVER 1 HOUR SUBCUTANEOUS
     Route: 058
  5. HIZENTRA [Suspect]
  6. GASTROCROM (CROMOGLICATE SODIUM) [Concomitant]
  7. ROWASA [Concomitant]
  8. AZATHIOPRINE (AZATHIOPRINE) [Concomitant]
  9. METFORMIN (METFORMIN) [Concomitant]
  10. DOCUSATE (DOCUSATE) [Concomitant]
  11. LIALDA (MESALAZINE) [Concomitant]
  12. PREDNISONE [Concomitant]
  13. FAMOTIDINE (FAMOTIDINE) [Concomitant]
  14. ITRACONAZOLE [Concomitant]
  15. SELENIUM (SELENIUM) [Concomitant]
  16. HIZENTRA [Suspect]
  17. ASTELIN (DIPROPHYLLINE) [Concomitant]

REACTIONS (4)
  - GASTROENTERITIS ESCHERICHIA COLI [None]
  - VOMITING [None]
  - DIARRHOEA [None]
  - NAUSEA [None]
